FAERS Safety Report 6426671-6 (Version None)
Quarter: 2009Q4

REPORT INFORMATION
  Report Type: 
  Country: None (occurrence: None)
  Receive Date: 20091104
  Receipt Date: 20091024
  Transmission Date: 20100525
  Serious: Yes (Other)
  Sender: FDA-Public Use
  Company Number: RS-BAYER-200937263GPV

PATIENT
  Age: 60 Year
  Sex: Female

DRUGS (1)
  1. ULTRAVIST 370 [Suspect]
     Indication: LIVER SCAN
     Dosage: DRUG WAS ADMINISTERED PARAVENOUS
     Dates: start: 20091021

REACTIONS (1)
  - RASH [None]
